FAERS Safety Report 8089950-5 (Version None)
Quarter: 2012Q1

REPORT INFORMATION
  Report Type: 
  Country: None (occurrence: None)
  Receive Date: 20120129
  Receipt Date: 20110921
  Transmission Date: 20120608
  Serious: No
  Sender: FDA-Public Use
  Company Number: US-ABBOTT-11P-163-0857157-00

PATIENT
  Sex: Male
  Weight: 86.26 kg

DRUGS (4)
  1. LISINOPRIL [Concomitant]
     Indication: HYPERTENSION
  2. HUMIRA [Suspect]
     Dates: start: 20110801, end: 20110801
  3. HUMIRA [Suspect]
     Indication: PSORIASIS
     Dates: start: 20110801, end: 20110801
  4. HUMIRA [Suspect]

REACTIONS (4)
  - ARTHRALGIA [None]
  - CHEST PAIN [None]
  - RASH [None]
  - RASH ERYTHEMATOUS [None]
